FAERS Safety Report 5803101-6 (Version None)
Quarter: 2008Q3

REPORT INFORMATION
  Report Type: 
  Country: None (occurrence: None)
  Receive Date: 20080701
  Receipt Date: 20080311
  Transmission Date: 20090109
  Serious: Yes (Hospitalization)
  Sender: FDA-Public Use
  Company Number: US200803004004

PATIENT
  Age: 34 Year
  Sex: Female

DRUGS (3)
  1. HUMALOG [Suspect]
  2. EXENATIDE (EXENATIDE) [Concomitant]
  3. METFORMIN HCL [Concomitant]

REACTIONS (2)
  - BLOOD GLUCOSE INCREASED [None]
  - DRUG EXPOSURE DURING PREGNANCY [None]
